FAERS Safety Report 16648347 (Version 1)
Quarter: 2019Q3

REPORT INFORMATION
  Report Type: Spontaneous
  Country: US (occurrence: US)
  Receive Date: 20190617
  Receipt Date: 20190617
  Transmission Date: 20191004
  Serious: No
  Sender: FDA-Public Use
  Company Number: None

PATIENT
  Age: 55 Year
  Sex: Female
  Weight: 86.5 kg

DRUGS (4)
  1. ROCEPHINE 2 GRAM [Suspect]
     Active Substance: CEFTRIAXONE SODIUM
     Indication: PNEUMONIA
     Route: 042
     Dates: start: 20190524
  2. XOPENEX 1.25M NEBULIZER TX ONCE [Concomitant]
  3. SODIUM CHLORIDE. [Concomitant]
     Active Substance: SODIUM CHLORIDE
  4. ATROVENT 0.02% NEBULIZER TX ONCE [Concomitant]

REACTIONS (3)
  - Pruritus [None]
  - Rash macular [None]
  - Drug hypersensitivity [None]

NARRATIVE: CASE EVENT DATE: 20190524
